FAERS Safety Report 16047754 (Version 1)
Quarter: 2019Q1

REPORT INFORMATION
  Report Type: Spontaneous
  Country: GB (occurrence: GB)
  Receive Date: 20190307
  Receipt Date: 20190307
  Transmission Date: 20190418
  Serious: Yes (Hospitalization)
  Sender: FDA-Public Use
  Company Number: GB-PFIZER INC-2019095608

PATIENT
  Age: 60 Year

DRUGS (6)
  1. TIVOZANIB [Concomitant]
     Active Substance: TIVOZANIB
     Dosage: 1340 MG, 1X/DAY (FOR 21 DAYS THEN 7 DAY BREAK)
  2. AMLODIPINE [Concomitant]
     Active Substance: AMLODIPINE BESYLATE
     Dosage: 10 MG, 1X/DAY
  3. LOPERAMIDE [Concomitant]
     Active Substance: LOPERAMIDE
     Dosage: 2 MG, AS NEEDED
  4. SERTRALINE HCL [Suspect]
     Active Substance: SERTRALINE HYDROCHLORIDE
     Dosage: 100 MG, 1X/DAY
  5. OMEPRAZOLE. [Suspect]
     Active Substance: OMEPRAZOLE
     Dosage: 40 MG, 1X/DAY
  6. PROPRANOLOL [Concomitant]
     Active Substance: PROPRANOLOL HYDROCHLORIDE
     Dosage: 40 MG, 1X/DAY

REACTIONS (4)
  - Confusional state [Unknown]
  - Dyspnoea [Unknown]
  - Emphysema [Unknown]
  - Hyponatraemia [Recovered/Resolved]
